FAERS Safety Report 5656131-1 (Version None)
Quarter: 2008Q1

REPORT INFORMATION
  Report Type: 
  Country: None (occurrence: None)
  Receive Date: 20080305
  Receipt Date: 20080219
  Transmission Date: 20080703
  Serious: Yes (Hospitalization)
  Sender: FDA-Public Use
  Company Number: CERZ-1000083

PATIENT
  Age: 52 Year
  Sex: Female

DRUGS (1)
  1. CEREZYME [Suspect]
     Indication: GAUCHER'S DISEASE
     Dosage: 2600 U, Q2W, INTRAVENOUS
     Route: 042
     Dates: start: 19910812

REACTIONS (3)
  - LIVER TRANSPLANT [None]
  - PLEURAL EFFUSION [None]
  - TYPE 2 DIABETES MELLITUS [None]
